FAERS Safety Report 4607494-7 (Version None)
Quarter: 2005Q1

REPORT INFORMATION
  Report Type: 
  Country: None (occurrence: None)
  Receive Date: 20050314
  Receipt Date: 20050303
  Transmission Date: 20050727
  Serious: Yes (Life-Threatening, Disabling)
  Sender: FDA-Public Use
  Company Number: JP-BRISTOL-MYERS SQUIBB COMPANY-12884623

PATIENT
  Sex: Male

DRUGS (4)
  1. TAXOL [Suspect]
     Indication: LUNG NEOPLASM MALIGNANT
     Route: 042
  2. PARAPLATIN [Suspect]
     Indication: LUNG NEOPLASM MALIGNANT
     Route: 042
  3. NASEA [Concomitant]
     Route: 042
  4. DECADRON [Concomitant]
     Route: 042

REACTIONS (1)
  - CEREBRAL INFARCTION [None]
